FAERS Safety Report 4990231-4 (Version None)
Quarter: 2006Q2

REPORT INFORMATION
  Report Type: 
  Country: None (occurrence: None)
  Receive Date: 20060503
  Receipt Date: 20060209
  Transmission Date: 20061013
  Serious: Yes (Hospitalization, Disabling, Other)
  Sender: FDA-Public Use
  Company Number: US-MERCK-0602USA02741

PATIENT
  Age: 80 Year
  Sex: Male
  Weight: 91 kg

DRUGS (11)
  1. VIOXX [Suspect]
     Indication: ARTHRITIS
     Route: 048
     Dates: start: 20020524, end: 20040131
  2. BEXTRA [Concomitant]
     Route: 065
  3. COUMADIN [Concomitant]
     Route: 065
  4. DYPHYLLINE AND GUAIFENESIN [Concomitant]
     Route: 065
  5. LASIX [Concomitant]
     Route: 065
     Dates: start: 20020523
  6. NIFEDIPINE [Concomitant]
     Route: 065
  7. POTASSIUM IODIDE [Concomitant]
     Route: 065
  8. TRIAMCINOLONE [Concomitant]
     Route: 065
  9. ULTRAVATE [Concomitant]
     Route: 065
  10. CORTISPORIN CREAM [Concomitant]
     Route: 065
  11. CELEBREX [Concomitant]
     Route: 065
     Dates: start: 20001221, end: 20020523

REACTIONS (6)
  - APHASIA [None]
  - CEREBRAL INFARCTION [None]
  - CEREBROVASCULAR ACCIDENT [None]
  - DEMENTIA [None]
  - THYROID DISORDER [None]
  - THYROIDECTOMY [None]
